FAERS Safety Report 7320643-5 (Version None)
Quarter: 2011Q1

REPORT INFORMATION
  Report Type: 
  Country: None (occurrence: None)
  Receive Date: 20110228
  Receipt Date: 20110223
  Transmission Date: 20110831
  Serious: Yes (Other)
  Sender: FDA-Public Use
  Company Number: ES-PFIZER INC-2011040014

PATIENT
  Sex: Female

DRUGS (1)
  1. SOLU-MODERIN [Suspect]
     Dosage: 125 MG, UNK

REACTIONS (1)
  - MONOCLONAL GAMMOPATHY [None]
